FAERS Safety Report 14446770 (Version 1)
Quarter: 2018Q1

REPORT INFORMATION
  Report Type: Spontaneous
  Country: IN (occurrence: IN)
  Receive Date: 20180126
  Receipt Date: 20180126
  Transmission Date: 20180509
  Serious: Yes (Death)
  Sender: FDA-Public Use
  Company Number: IN-FERRINGPH-2018FE00278

PATIENT

DRUGS (1)
  1. PROPESS [Suspect]
     Active Substance: DINOPROSTONE
     Indication: LABOUR INDUCTION
     Dosage: 1 DF, ONCE/SINGLE
     Route: 064
     Dates: start: 20171104, end: 20171104

REACTIONS (1)
  - Apgar score low [Fatal]

NARRATIVE: CASE EVENT DATE: 20171104
